FAERS Safety Report 11175116 (Version 1)
Quarter: 2015Q2

REPORT INFORMATION
  Report Type: Spontaneous
  Country: IT (occurrence: IT)
  Receive Date: 20150609
  Receipt Date: 20150609
  Transmission Date: 20150821
  Serious: Yes (Other)
  Sender: FDA-Public Use
  Company Number: PHHY2015IT059894

PATIENT
  Age: 45 Year
  Sex: Female

DRUGS (2)
  1. FUROSEMIDE. [Suspect]
     Active Substance: FUROSEMIDE
     Indication: CELLULITIS
     Dosage: 1 DF, ONCE/SINGLE
     Route: 058
     Dates: start: 20150401, end: 20150401
  2. AMINOPHYLLINE [Suspect]
     Active Substance: AMINOPHYLLINE
     Indication: CELLULITIS
     Dosage: 1 DF, ONCE/SINGLE
     Route: 058
     Dates: start: 20150401, end: 20150401

REACTIONS (6)
  - Dyspnoea [Recovering/Resolving]
  - Tachycardia [Recovering/Resolving]
  - Off label use [Unknown]
  - Panic attack [Recovering/Resolving]
  - Chest discomfort [Recovering/Resolving]
  - Malaise [Recovering/Resolving]

NARRATIVE: CASE EVENT DATE: 20150401
